FAERS Safety Report 5658154-5 (Version None)
Quarter: 2008Q1

REPORT INFORMATION
  Report Type: 
  Country: None (occurrence: None)
  Receive Date: 20080310
  Receipt Date: 20070109
  Transmission Date: 20080703
  Serious: No
  Sender: FDA-Public Use
  Company Number: US-BAYER-200710069BCC

PATIENT
  Age: 23 Year
  Sex: Male
  Weight: 61 kg

DRUGS (2)
  1. ALEVE [Suspect]
     Indication: DRUG USE FOR UNKNOWN INDICATION
     Dosage: UNIT DOSE: 220 MG
     Route: 048
     Dates: start: 20070103, end: 20070105
  2. VITAMIN B COMPLEX CAP [Concomitant]

REACTIONS (1)
  - RASH [None]
